FAERS Safety Report 18247315 (Version 2)
Quarter: 2020Q3

REPORT INFORMATION
  Report Type: Spontaneous
  Country: US (occurrence: US)
  Receive Date: 20200909
  Receipt Date: 20200913
  Transmission Date: 20201103
  Serious: No
  Sender: FDA-Public Use
  Company Number: US-SA-2020SA242419

PATIENT

DRUGS (1)
  1. LANTUS [Suspect]
     Active Substance: INSULIN GLARGINE
     Dosage: 50 IU, QD
     Route: 065
     Dates: start: 202006

REACTIONS (3)
  - High risk pregnancy [Unknown]
  - Product use in unapproved indication [Unknown]
  - Exposure during pregnancy [Unknown]
